FAERS Safety Report 6753803-2 (Version None)
Quarter: 2010Q2

REPORT INFORMATION
  Report Type: 
  Country: None (occurrence: None)
  Receive Date: 20100603
  Receipt Date: 20100524
  Transmission Date: 20101027
  Serious: Yes (Other)
  Sender: FDA-Public Use
  Company Number: CZ-PFIZER INC-2010013546

PATIENT
  Sex: Male

DRUGS (1)
  1. LYRICA [Suspect]
     Indication: PARTIAL SEIZURES
     Dosage: 75 MG, 2X/DAY
     Route: 048
     Dates: start: 20091101, end: 20100201

REACTIONS (7)
  - DYSARTHRIA [None]
  - LOSS OF LIBIDO [None]
  - MUSCLE CONTRACTIONS INVOLUNTARY [None]
  - MUSCULOSKELETAL STIFFNESS [None]
  - NERVOUSNESS [None]
  - PARTIAL SEIZURES [None]
  - SLEEP DISORDER [None]
